FAERS Safety Report 9043534 (Version 1)
Quarter: 2013Q1

REPORT INFORMATION
  Report Type: Report from Study
  Country: US (occurrence: US)
  Receive Date: 20130129
  Receipt Date: 20130129
  Transmission Date: 20140127
  Serious: No
  Sender: FDA-Public Use
  Company Number: US-ABBOTT-12P-163-0912799-00

PATIENT
  Sex: Female
  Weight: 51.76 kg

DRUGS (4)
  1. HUMIRA 40 MG/0.8 ML PEN [Suspect]
     Indication: CROHN^S DISEASE
  2. HUMIRA 40 MG/0.8 ML PEN [Suspect]
     Dates: end: 20120219
  3. HUMIRA 40 MG/0.8 ML PEN [Suspect]
     Dates: start: 20120219
  4. METHOTREXATE [Concomitant]
     Indication: CROHN^S DISEASE

REACTIONS (1)
  - Drug ineffective [Unknown]
